FAERS Safety Report 25825395 (Version 1)
Quarter: 2025Q3

REPORT INFORMATION
  Report Type: Spontaneous
  Country: US (occurrence: US)
  Receive Date: 20250919
  Receipt Date: 20250919
  Transmission Date: 20251021
  Serious: Yes (Other)
  Sender: AMGEN
  Company Number: US-AMGEN-USASP2025182463

PATIENT
  Age: 51 Year
  Sex: Male

DRUGS (6)
  1. PREDNISONE [Suspect]
     Active Substance: PREDNISONE
     Indication: Ophthalmic herpes zoster
     Route: 048
  2. PREDNISONE [Suspect]
     Active Substance: PREDNISONE
     Dosage: 60 MILLIGRAM, QD, (TAPERED)
     Route: 048
  3. VALACYCLOVIR [Concomitant]
     Active Substance: VALACYCLOVIR HYDROCHLORIDE
     Route: 048
  4. VALACYCLOVIR [Concomitant]
     Active Substance: VALACYCLOVIR HYDROCHLORIDE
     Dosage: 1 GRAM, QD, (MAINTENANCE DOSE)
     Route: 048
  5. VALACYCLOVIR [Concomitant]
     Active Substance: VALACYCLOVIR HYDROCHLORIDE
     Dosage: 1 GRAM, TID
     Route: 048
  6. GANCICLOVIR [Concomitant]
     Active Substance: GANCICLOVIR
     Route: 061

REACTIONS (6)
  - Optic neuritis [Unknown]
  - Iridocyclitis [Recovered/Resolved]
  - Chorioretinopathy [Unknown]
  - Scleral disorder [Unknown]
  - Neurotrophic keratopathy [Unknown]
  - Off label use [Unknown]
